FAERS Safety Report 4683685-4 (Version None)
Quarter: 2005Q2

REPORT INFORMATION
  Report Type: 
  Country: None (occurrence: None)
  Receive Date: 20050607
  Receipt Date: 20050527
  Transmission Date: 20051028
  Serious: Yes (Other)
  Sender: FDA-Public Use
  Company Number: 200514578US

PATIENT
  Age: 62 Year
  Sex: Female

DRUGS (1)
  1. KETEK [Suspect]
     Dosage: DOSE: UNKNOWN

REACTIONS (3)
  - ABNORMAL SENSATION IN EYE [None]
  - INTRAOCULAR PRESSURE INCREASED [None]
  - VITREOUS DETACHMENT [None]
